FAERS Safety Report 11890857 (Version 1)
Quarter: 2016Q1

REPORT INFORMATION
  Report Type: Spontaneous
  Country: CN (occurrence: CN)
  Receive Date: 20160106
  Receipt Date: 20160106
  Transmission Date: 20160526
  Serious: Yes (Disabling)
  Sender: FDA-Public Use
  Company Number: CN-ROCHE-1689330

PATIENT
  Age: 60 Year
  Sex: Male
  Weight: 75 kg

DRUGS (2)
  1. ROCEPHIN [Suspect]
     Active Substance: CEFTRIAXONE SODIUM
     Indication: MENINGOENCEPHALITIS BACTERIAL
     Route: 041
     Dates: start: 20150613, end: 20150624
  2. DEPAKINE [Suspect]
     Active Substance: VALPROATE SODIUM
     Indication: EPILEPSY
     Route: 048
     Dates: start: 20150613, end: 20150624

REACTIONS (1)
  - Liver injury [Recovering/Resolving]

NARRATIVE: CASE EVENT DATE: 20150624
